FAERS Safety Report 14258530 (Version 7)
Quarter: 2023Q2

REPORT INFORMATION
  Report Type: Spontaneous
  Country: US (occurrence: US)
  Receive Date: 20171207
  Receipt Date: 20230410
  Transmission Date: 20230721
  Serious: No
  Sender: FDA-Public Use
  Company Number: US-PFIZER INC-2017522435

PATIENT
  Age: 69 Year
  Sex: Male
  Weight: 72.109 kg

DRUGS (4)
  1. PROCARDIA XL [Suspect]
     Active Substance: NIFEDIPINE
     Indication: Blood pressure abnormal
     Dosage: 30 MG
  2. PROCARDIA XL [Suspect]
     Active Substance: NIFEDIPINE
     Dosage: 60 MG, 1X/DAY (ONCE DAILY)
     Dates: start: 2007
  3. LISINOPRIL [Concomitant]
     Active Substance: LISINOPRIL
     Indication: Blood pressure abnormal
     Dosage: UNK
     Route: 048
  4. ALLOPURINOL [Concomitant]
     Active Substance: ALLOPURINOL
     Indication: Gout
     Dosage: UNK
     Route: 048

REACTIONS (4)
  - Therapeutic product effect incomplete [Unknown]
  - Back pain [Unknown]
  - Pain [Unknown]
  - Muscle spasms [Unknown]
